FAERS Safety Report 10404105 (Version 1)
Quarter: 2014Q1

REPORT INFORMATION
  Report Type: Spontaneous
  Country: US (occurrence: None)
  Receive Date: 20130815
  Receipt Date: 20130815
  Transmission Date: 20141002
  Serious: Yes (Other)
  Sender: FDA-Public Use
  Company Number: ADR-2013-00299

PATIENT
  Age: 53 Year
  Sex: Male

DRUGS (3)
  1. BACLOFEN ORAL [Suspect]
     Dosage: UNKNOWN DOSAGE TEXT
     Route: 048
  2. MORPHINE INTRATHECAL: BUPIVACAINE [Concomitant]
  3. NARCAN [Concomitant]

REACTIONS (3)
  - Respiratory distress [None]
  - Somnolence [None]
  - Overdose [None]
